FAERS Safety Report 13032338 (Version 2)
Quarter: 2017Q1

REPORT INFORMATION
  Report Type: Report from Study
  Country: US (occurrence: US)
  Receive Date: 20161215
  Receipt Date: 20170113
  Transmission Date: 20170428
  Serious: Yes (Hospitalization, Other)
  Sender: FDA-Public Use
  Company Number: US-PFIZER INC-2016566632

PATIENT
  Age: 3 Year
  Sex: Male
  Weight: 11 kg

DRUGS (16)
  1. DOXORUBICIN HCL [Suspect]
     Active Substance: DOXORUBICIN HYDROCHLORIDE
     Indication: HEPATOBLASTOMA
     Dosage: 30 MG/M2/DOSE OVER 15 MIN ON DAYS 1 AND 2 CYCLE 3-8
     Route: 042
     Dates: start: 20160602, end: 20160912
  2. VINCRISTINE SULFATE. [Suspect]
     Active Substance: VINCRISTINE SULFATE
     Indication: HEPATOBLASTOMA
     Dosage: 1.5 MG/M2/DOSE OVER 1 MIN OR INFUSION VIA MINIBAG ON DAY 1 AND 8 CYCLE 1,2; DAYS 2,9,16 CYCLE 3-8
     Route: 042
     Dates: start: 20160416, end: 20161031
  3. ENALAPRIL [Suspect]
     Active Substance: ENALAPRIL
     Dosage: 1 MG, UNK
     Route: 048
     Dates: start: 20161101
  4. BUDESONIDE. [Concomitant]
     Active Substance: BUDESONIDE
     Dosage: UNK
  5. TRIAMCINOLONE [Concomitant]
     Active Substance: TRIAMCINOLONE
     Dosage: UNK
  6. TEMSIROLIMUS [Suspect]
     Active Substance: TEMSIROLIMUS
     Indication: HEPATOBLASTOMA
     Dosage: 35 MG/M2/ DOSE, OVER 30 MIN ON DAYS 1 AND 8.CYCLE 1-2
     Route: 042
     Dates: start: 20160416, end: 20160516
  7. FLUOROURACIL. [Suspect]
     Active Substance: FLUOROURACIL
     Indication: HEPATOBLASTOMA
     Dosage: 600 MG/M2/DOSE OVER 2-4 MIN ON DAY 2 CYCLE 3-8
     Route: 042
     Dates: start: 20160603, end: 20161014
  8. SULFAMETHOXAZOLE W/TRIMETHOPRIM [Concomitant]
     Active Substance: SULFAMETHOXAZOLE\TRIMETHOPRIM
     Dosage: UNK
  9. ENALAPRIL [Suspect]
     Active Substance: ENALAPRIL
     Dosage: 0.5 MG TWICE DAILY
     Route: 048
     Dates: start: 20161031, end: 20161031
  10. RANITIDINE. [Concomitant]
     Active Substance: RANITIDINE
     Dosage: UNK
  11. VANCOMYCIN [Concomitant]
     Active Substance: VANCOMYCIN
     Dosage: UNK
  12. CEFTAZIDIME. [Concomitant]
     Active Substance: CEFTAZIDIME
     Dosage: UNK
  13. ONDANSETRON [Concomitant]
     Active Substance: ONDANSETRON
     Dosage: UNK
  14. CISPLATIN. [Suspect]
     Active Substance: CISPLATIN
     Indication: HEPATOBLASTOMA
     Dosage: 100 MG/M2/DOSE OVER 6 HOURS ON DAY 1 CYCLE 3-8
     Route: 042
     Dates: start: 20160602, end: 20161013
  15. CAMPTOSAR [Suspect]
     Active Substance: IRINOTECAN HYDROCHLORIDE
     Indication: HEPATOBLASTOMA
     Dosage: 50 MG/M2/DOSE OVER 90 MIN ON DAYS 1-5 CYCLE 1-2
     Route: 042
     Dates: start: 20160416, end: 20160513
  16. MICAFUNGIN [Concomitant]
     Active Substance: MICAFUNGIN
     Dosage: UNK

REACTIONS (2)
  - Cardiac failure [Unknown]
  - Ejection fraction decreased [Unknown]

NARRATIVE: CASE EVENT DATE: 20161012
